FAERS Safety Report 5341605-3 (Version None)
Quarter: 2007Q2

REPORT INFORMATION
  Report Type: 
  Country: None (occurrence: None)
  Receive Date: 20070529
  Receipt Date: 20070529
  Transmission Date: 20071010
  Serious: No
  Sender: FDA-Public Use
  Company Number: None

PATIENT
  Age: 20 Year
  Sex: Female
  Weight: 67.1324 kg

DRUGS (2)
  1. MYSOLINE [Suspect]
     Indication: MENTAL RETARDATION SEVERITY UNSPECIFIED
     Dosage: 250MG/ML ORAL
     Route: 048
  2. MYSOLINE [Suspect]
     Indication: RETT'S DISORDER
     Dosage: 250MG/ML ORAL
     Route: 048

REACTIONS (2)
  - MENTAL RETARDATION SEVERITY UNSPECIFIED [None]
  - RETT'S DISORDER [None]
